FAERS Safety Report 4662977-9 (Version None)
Quarter: 2005Q2

REPORT INFORMATION
  Report Type: 
  Country: None (occurrence: None)
  Receive Date: 20050511
  Receipt Date: 20050214
  Transmission Date: 20051028
  Serious: Yes (Hospitalization)
  Sender: FDA-Public Use
  Company Number: ZONI002115

PATIENT
  Sex: Female

DRUGS (1)
  1. ZONEGRAN [Suspect]
     Dosage: 400 MG, 1 IN 1 D, ORAL
     Route: 048
     Dates: end: 20050101

REACTIONS (1)
  - PSYCHIATRIC SYMPTOM [None]
